FAERS Safety Report 7334281-1 (Version None)
Quarter: 2011Q1

REPORT INFORMATION
  Report Type: 
  Country: None (occurrence: None)
  Receive Date: 20110307
  Receipt Date: 20110301
  Transmission Date: 20110831
  Serious: Yes (Other)
  Sender: FDA-Public Use
  Company Number: US-BAYER-2011-020156

PATIENT
  Sex: Female

DRUGS (2)
  1. YAZ [Suspect]
     Indication: PRODUCT USED FOR UNKNOWN INDICATION
  2. YASMIN [Suspect]
     Indication: PRODUCT USED FOR UNKNOWN INDICATION

REACTIONS (6)
  - PALPITATIONS [None]
  - INJURY [None]
  - GALLBLADDER NON-FUNCTIONING [None]
  - GALLBLADDER DISORDER [None]
  - PAIN [None]
  - MITRAL VALVE PROLAPSE [None]
